FAERS Safety Report 6136652-8 (Version None)
Quarter: 2009Q1

REPORT INFORMATION
  Report Type: 
  Country: None (occurrence: None)
  Receive Date: 20090330
  Receipt Date: 20090317
  Transmission Date: 20090719
  Serious: Yes (Hospitalization)
  Sender: FDA-Public Use
  Company Number: B0565512A

PATIENT
  Age: 51 Year
  Sex: Female

DRUGS (10)
  1. CEFUROXIME SODIUM [Suspect]
     Indication: PROPHYLAXIS
     Dosage: 4.5G PER DAY
  2. ETACRYNIC ACID [Suspect]
  3. OXYCODONE HCL [Suspect]
  4. AMLODIPINE BESYLATE [Suspect]
  5. PREDNISONE [Concomitant]
     Dosage: 10MG PER DAY
  6. HYDROXYCHLOROQUINE [Concomitant]
  7. PANTOPRAZOLE SODIUM [Concomitant]
  8. ATENOLOL [Concomitant]
  9. DILTIAZEM [Concomitant]
  10. SPIRONOLACTONE [Concomitant]

REACTIONS (9)
  - BLOOD ALBUMIN DECREASED [None]
  - BLOOD CREATININE INCREASED [None]
  - BLOOD UREA INCREASED [None]
  - HAEMOGLOBIN DECREASED [None]
  - OEDEMA [None]
  - PROTEINURIA [None]
  - RED BLOOD CELL SEDIMENTATION RATE INCREASED [None]
  - RENAL FAILURE ACUTE [None]
  - TUBULOINTERSTITIAL NEPHRITIS [None]
